FAERS Safety Report 5222889-9 (Version None)
Quarter: 2007Q1

REPORT INFORMATION
  Report Type: 
  Country: None (occurrence: None)
  Receive Date: 20070129
  Receipt Date: 20070117
  Transmission Date: 20070707
  Serious: Yes (Hospitalization)
  Sender: FDA-Public Use
  Company Number: DE-PFIZER INC-2007002030

PATIENT
  Age: 76 Year
  Sex: Female

DRUGS (2)
  1. CELEBREX [Suspect]
     Indication: PAIN
     Route: 048
     Dates: start: 20061201, end: 20070104
  2. LITHIUM CARBONATE [Interacting]
     Indication: BIPOLAR DISORDER
     Dosage: DAILY DOSE:900MG
     Dates: start: 19900101

REACTIONS (4)
  - DRUG INTERACTION [None]
  - LETHARGY [None]
  - SOMNOLENCE [None]
  - TREMOR [None]
